FAERS Safety Report 21840811 (Version 1)
Quarter: 2023Q1

REPORT INFORMATION
  Report Type: Report from Study
  Country: US (occurrence: US)
  Receive Date: 20230110
  Receipt Date: 20230110
  Transmission Date: 20230418
  Serious: Yes (Other)
  Sender: FDA-Public Use
  Company Number: US-ABBVIE-4261948

PATIENT
  Sex: Male

DRUGS (1)
  1. SKYRIZI [Suspect]
     Active Substance: RISANKIZUMAB-RZAA
     Indication: Psoriasis
     Dosage: FREQUENCY TEXT: 84 DAYS SUPPLY
     Route: 058
     Dates: start: 2021, end: 20220501

REACTIONS (2)
  - Mycobacterium tuberculosis complex test positive [Unknown]
  - Anaemia [Unknown]
